FAERS Safety Report 9659834 (Version 2)
Quarter: 2013Q4

REPORT INFORMATION
  Report Type: Spontaneous
  Country: SE (occurrence: SE)
  Receive Date: 20131031
  Receipt Date: 20131122
  Transmission Date: 20140711
  Serious: Yes (Other)
  Sender: FDA-Public Use
  Company Number: SE-ASTELLAS-2013EU009270

PATIENT
  Age: 37 Year
  Sex: Female

DRUGS (1)
  1. BETMIGA [Suspect]
     Dosage: 50 MG, UID/QD
     Route: 065
     Dates: start: 20130903

REACTIONS (2)
  - Biliary colic [Recovered/Resolved]
  - Abdominal pain upper [Recovered/Resolved]
